FAERS Safety Report 18279023 (Version 4)
Quarter: 2021Q1

REPORT INFORMATION
  Report Type: Report from Study
  Country: BR (occurrence: BR)
  Receive Date: 20200917
  Receipt Date: 20210115
  Transmission Date: 20210419
  Serious: Yes (Other)
  Sender: FDA-Public Use
  Company Number: NVSC2020BR134311

PATIENT
  Age: 58 Year
  Sex: Female
  Weight: 61.5 kg

DRUGS (7)
  1. BYL719 [Suspect]
     Active Substance: ALPELISIB
     Dosage: 250 MG
     Route: 048
     Dates: start: 20200720, end: 20200901
  2. BYL719 [Suspect]
     Active Substance: ALPELISIB
     Indication: BREAST CANCER METASTATIC
     Dosage: 250 MG
     Route: 048
     Dates: start: 20200427, end: 20200501
  3. FULVESTRANT. [Concomitant]
     Active Substance: FULVESTRANT
     Indication: BREAST CANCER
     Dosage: 500 MG
     Route: 065
     Dates: start: 20200427, end: 20201116
  4. METFORMIN [Concomitant]
     Active Substance: METFORMIN HYDROCHLORIDE
     Indication: PRODUCT USED FOR UNKNOWN INDICATION
     Dosage: 500 MG, QD
     Route: 065
  5. BYL719 [Suspect]
     Active Substance: ALPELISIB
     Dosage: 200 MG
     Route: 048
     Dates: start: 20200427, end: 20201202
  6. BYL719 [Suspect]
     Active Substance: ALPELISIB
     Dosage: 200 MG
     Route: 048
     Dates: start: 20200502
  7. TRAYENTA [Concomitant]
     Active Substance: LINAGLIPTIN
     Indication: PRODUCT USED FOR UNKNOWN INDICATION
     Dosage: 5 MG, QD
     Route: 065

REACTIONS (10)
  - Pyrexia [Unknown]
  - Malignant neoplasm progression [Not Recovered/Not Resolved]
  - Nausea [Unknown]
  - Metastases to liver [Unknown]
  - Renal impairment [Recovering/Resolving]
  - Hyperglycaemia [Recovered/Resolved]
  - Breast cancer metastatic [Not Recovered/Not Resolved]
  - Blood glucose abnormal [Unknown]
  - Vomiting [Unknown]
  - Pyelonephritis [Recovered/Resolved with Sequelae]

NARRATIVE: CASE EVENT DATE: 20200430
